FAERS Safety Report 8464618-1 (Version None)
Quarter: 2012Q2

REPORT INFORMATION
  Report Type: 
  Country: None (occurrence: None)
  Receive Date: 20120323
  Receipt Date: 20111109
  Transmission Date: 20120825
  Serious: Yes (Hospitalization)
  Sender: FDA-Public Use
  Company Number: 163-21880-11111417

PATIENT
  Age: 56 Year
  Sex: Female

DRUGS (12)
  1. PAROXETINE HCL (PAROXETINE HYDORCHLORIDE) [Concomitant]
  2. ANTACID (ANTACIDS) [Concomitant]
  3. PAXIL CR [Concomitant]
  4. BENAZEPRIL HCL (BENAZEPRIL HYDROCHLORIDE) [Concomitant]
  5. GABAOENTUN *GABAOENTUN( [Concomitant]
  6. COUMADIN [Concomitant]
  7. ASPIRIN [Concomitant]
  8. RENAGEL [Concomitant]
  9. AMLODIPINE BESYLATE [Concomitant]
  10. REVLIMID [Suspect]
     Indication: MULTIPLE MYELOMA
     Dosage: 5 MG, X 28, PO
     Route: 048
     Dates: start: 20110710
  11. CALCIUM CARBONATE [Concomitant]
  12. TERAZOSIN HCL [Concomitant]

REACTIONS (1)
  - RED BLOOD CELL COUNT DECREASED [None]
